FAERS Safety Report 16535563 (Version 1)
Quarter: 2019Q3

REPORT INFORMATION
  Report Type: Spontaneous
  Country: US (occurrence: US)
  Receive Date: 20190705
  Receipt Date: 20190705
  Transmission Date: 20191004
  Serious: No
  Sender: FDA-Public Use
  Company Number: US-PFIZER INC-2019283119

PATIENT
  Age: 59 Year
  Sex: Male

DRUGS (3)
  1. METHOCARBAMOL. [Suspect]
     Active Substance: METHOCARBAMOL
     Dosage: 750 MG, UNK
  2. GABAPENTIN. [Suspect]
     Active Substance: GABAPENTIN
     Dosage: 600 MG, UNK
  3. TAPENTADOL [Suspect]
     Active Substance: TAPENTADOL
     Dosage: UNK

REACTIONS (1)
  - Dizziness [Unknown]
